FAERS Safety Report 9058483 (Version 2)
Quarter: 2013Q3

REPORT INFORMATION
  Report Type: Spontaneous
  Country: US (occurrence: US)
  Receive Date: 20130211
  Receipt Date: 20130702
  Transmission Date: 20140515
  Serious: Yes (Hospitalization, Other)
  Sender: FDA-Public Use
  Company Number: US-ELI_LILLY_AND_COMPANY-US201302000195

PATIENT
  Sex: Female

DRUGS (3)
  1. CYMBALTA [Suspect]
     Indication: FIBROMYALGIA
     Dosage: 60 MG, QD
  2. CYMBALTA [Suspect]
     Indication: DEPRESSION
  3. PERCOCET [Concomitant]

REACTIONS (3)
  - Pancreatitis [Unknown]
  - Non-Hodgkin^s lymphoma [Unknown]
  - Whipple^s disease [Unknown]
